FAERS Safety Report 23789285 (Version 1)
Quarter: 2024Q2

REPORT INFORMATION
  Report Type: Spontaneous
  Country: US (occurrence: None)
  Receive Date: 20240425
  Receipt Date: 20240425
  Transmission Date: 20240716
  Serious: No
  Sender: FDA-Public Use
  Company Number: None

PATIENT
  Age: 68 Year
  Sex: Male

DRUGS (1)
  1. REXULTI [Suspect]
     Active Substance: BREXPIPRAZOLE
     Route: 048
     Dates: start: 20240319, end: 20240409

REACTIONS (3)
  - Atrial fibrillation [None]
  - Myocardial infarction [None]
  - Renal failure [None]

NARRATIVE: CASE EVENT DATE: 20240409
